FAERS Safety Report 13770368 (Version 1)
Quarter: 2017Q3

REPORT INFORMATION
  Report Type: Spontaneous
  Country: HU (occurrence: HU)
  Receive Date: 20170719
  Receipt Date: 20170719
  Transmission Date: 20171127
  Serious: Yes (Hospitalization, Other)
  Sender: FDA-Public Use
  Company Number: HU-B.I. PHARMACEUTICALS,INC./RIDGEFIELD-2017-BI-040306

PATIENT
  Age: 70 Year
  Sex: Male

DRUGS (4)
  1. PRADAXA [Suspect]
     Active Substance: DABIGATRAN ETEXILATE MESYLATE
     Route: 065
     Dates: end: 201507
  2. LOW MOLECULAR WEIGHT HEPARIN (LMWH) [Concomitant]
     Dates: start: 201310, end: 201310
  3. PRADAXA [Suspect]
     Active Substance: DABIGATRAN ETEXILATE MESYLATE
     Indication: PRODUCT USED FOR UNKNOWN INDICATION
     Route: 065
     Dates: start: 20120119
  4. LOW MOLECULAR WEIGHT HEPARIN (LMWH) [Concomitant]
     Indication: PRODUCT USED FOR UNKNOWN INDICATION
     Route: 065
     Dates: start: 20120104, end: 201201

REACTIONS (27)
  - Facial bones fracture [Unknown]
  - Dizziness [Unknown]
  - Vertebrobasilar insufficiency [Unknown]
  - Surgery [Unknown]
  - Cerebral atrophy [Unknown]
  - Vascular encephalopathy [Unknown]
  - Nausea [Unknown]
  - Road traffic accident [Unknown]
  - Basal ganglia infarction [Unknown]
  - Aphasia [Unknown]
  - Dyskinesia [Unknown]
  - Subdural haematoma [Recovered/Resolved]
  - Cerebrovascular disorder [Unknown]
  - Encephalomalacia [Unknown]
  - Dizziness [Unknown]
  - Restlessness [Unknown]
  - Hypertension [Unknown]
  - Wound [Unknown]
  - Blood glucose increased [Unknown]
  - Cerebellar atrophy [Unknown]
  - Neurodegenerative disorder [Unknown]
  - Cerebrovascular disorder [Unknown]
  - Vascular injury [Unknown]
  - Gait disturbance [Unknown]
  - Disorientation [Unknown]
  - Facial paresis [Unknown]
  - Face injury [Unknown]

NARRATIVE: CASE EVENT DATE: 20130811
